FAERS Safety Report 4743827-9 (Version None)
Quarter: 2005Q3

REPORT INFORMATION
  Report Type: 
  Country: None (occurrence: None)
  Receive Date: 20050809
  Receipt Date: 20050513
  Transmission Date: 20060218
  Serious: Yes (Hospitalization)
  Sender: FDA-Public Use
  Company Number: 2005FR-00185

PATIENT
  Age: 89 Year
  Sex: Female

DRUGS (10)
  1. ASPIRIN [Suspect]
     Indication: ATRIAL FIBRILLATION
     Dosage: 75 MG
     Route: 048
     Dates: end: 20050501
  2. ACETAMINOPHEN [Concomitant]
  3. TRAMADOL HCL [Concomitant]
  4. ALLOPURINOL [Concomitant]
  5. EPILIM [Concomitant]
  6. LANSOPRAZOLE [Concomitant]
  7. DIGOXIN [Concomitant]
  8. BENDROFLUMETHIAZIDE [Concomitant]
  9. BUMETANIDE [Concomitant]
  10. CALCICHEW D3 [Concomitant]

REACTIONS (1)
  - NORMOCHROMIC NORMOCYTIC ANAEMIA [None]
